FAERS Safety Report 9066537 (Version 2)
Quarter: 2013Q1

REPORT INFORMATION
  Report Type: Report from Study
  Country: JP (occurrence: JP)
  Receive Date: 20130214
  Receipt Date: 20130228
  Transmission Date: 20140127
  Serious: Yes (Hospitalization)
  Sender: FDA-Public Use
  Company Number: JP-PFIZER INC-2013055633

PATIENT
  Age: 67 Year
  Sex: Female
  Weight: 64 kg

DRUGS (8)
  1. IRINOTECAN HCL [Suspect]
     Indication: COLORECTAL CANCER METASTATIC
     Dosage: UNK
     Route: 042
     Dates: start: 20120626, end: 20121203
  2. FLUOROURACIL [Suspect]
     Indication: COLORECTAL CANCER METASTATIC
     Dosage: UNK
     Route: 042
     Dates: start: 20120626, end: 20121203
  3. FOLINIC ACID [Suspect]
     Indication: COLORECTAL CANCER METASTATIC
     Dosage: UNK
     Route: 042
     Dates: start: 20120626, end: 20121203
  4. BLINDED THERAPY [Suspect]
     Indication: COLORECTAL CANCER METASTATIC
     Dosage: UNK
     Route: 042
     Dates: start: 20120626, end: 20121203
  5. URSO [Concomitant]
     Indication: COLORECTAL CANCER METASTATIC
     Dosage: UNK
     Dates: start: 20110614
  6. LYRICA [Concomitant]
     Indication: NEUROPATHY PERIPHERAL
     Dosage: UNK
     Dates: start: 20120209
  7. NORVASC [Concomitant]
     Indication: HYPERTENSION
     Dosage: UNK
     Dates: start: 20120724
  8. PROTECADIN [Concomitant]
     Indication: GASTRITIS PROPHYLAXIS
     Dosage: UNK
     Dates: start: 20121011

REACTIONS (1)
  - Bile duct obstruction [Recovered/Resolved]
